FAERS Safety Report 26203302 (Version 1)
Quarter: 2025Q4

REPORT INFORMATION
  Report Type: Spontaneous
  Country: US (occurrence: None)
  Receive Date: 20251223
  Receipt Date: 20251223
  Transmission Date: 20260118
  Serious: Yes (unspecified)
  Sender: FDA-CTU
  Company Number: None

PATIENT
  Age: 5 Year
  Sex: Female
  Weight: 20.7 kg

DRUGS (1)
  1. ASPARLAS [Suspect]
     Active Substance: CALASPARGASE PEGOL-MKNL
     Dosage: 1950 IU INTERNATIONAL UNIT(S)
     Dates: start: 20251103, end: 20251223

REACTIONS (4)
  - Anaphylactic reaction [None]
  - Infusion related reaction [None]
  - Vomiting [None]
  - Tachycardia [None]

NARRATIVE: CASE EVENT DATE: 20251223
